FAERS Safety Report 8537102-4 (Version None)
Quarter: 2012Q3

REPORT INFORMATION
  Report Type: 
  Country: None (occurrence: None)
  Receive Date: 20120725
  Receipt Date: 20120716
  Transmission Date: 20120928
  Serious: Yes (Hospitalization)
  Sender: FDA-Public Use
  Company Number: US-BAYER-2012-072925

PATIENT
  Age: 21 Year
  Sex: Female
  Weight: 99.773 kg

DRUGS (4)
  1. ANTIFUNGALS [Concomitant]
  2. YASMIN [Suspect]
     Indication: CONTRACEPTION
  3. PERCOCET [Concomitant]
  4. PEPCID [Concomitant]

REACTIONS (2)
  - PELVIC VENOUS THROMBOSIS [None]
  - VENA CAVA THROMBOSIS [None]
